FAERS Safety Report 16667349 (Version 2)
Quarter: 2019Q4

REPORT INFORMATION
  Report Type: Report from Study
  Country: DE (occurrence: DE)
  Receive Date: 20190805
  Receipt Date: 20191211
  Transmission Date: 20200122
  Serious: Yes (Other)
  Sender: FDA-Public Use
  Company Number: DE-ROCHE-2368573

PATIENT
  Sex: Male
  Weight: 80 kg

DRUGS (3)
  1. RANIBIZUMAB. [Suspect]
     Active Substance: RANIBIZUMAB
     Indication: VISUAL IMPAIRMENT
     Dosage: 1X, PREFILLED SYRINGE
     Route: 031
     Dates: start: 20181212
  2. RANIBIZUMAB. [Suspect]
     Active Substance: RANIBIZUMAB
     Indication: CHOROIDAL NEOVASCULARISATION
     Dosage: 1X, PREFILLED SYRINGE
     Route: 031
     Dates: start: 20190109
  3. RANIBIZUMAB. [Suspect]
     Active Substance: RANIBIZUMAB
     Indication: CHORIORETINOPATHY
     Dosage: 1X, PREFILLED SYRINGE
     Route: 031
     Dates: start: 20190206

REACTIONS (5)
  - Subretinal fluid [Recovering/Resolving]
  - Condition aggravated [Recovering/Resolving]
  - Chorioretinopathy [Recovering/Resolving]
  - Concomitant disease aggravated [Recovering/Resolving]
  - Detachment of retinal pigment epithelium [Recovering/Resolving]

NARRATIVE: CASE EVENT DATE: 20190603
